FAERS Safety Report 12937415 (Version 1)
Quarter: 2016Q4

REPORT INFORMATION
  Report Type: Spontaneous
  Country: US (occurrence: US)
  Receive Date: 20161114
  Receipt Date: 20161114
  Transmission Date: 20170207
  Serious: No
  Sender: FDA-Public Use
  Company Number: US-GALDERMA-US16004681

PATIENT
  Sex: Female

DRUGS (1)
  1. CLOBEX [Suspect]
     Active Substance: CLOBETASOL PROPIONATE
     Indication: RASH
     Dosage: 0.05%
     Route: 061

REACTIONS (2)
  - Therapeutic response unexpected [Recovered/Resolved]
  - Product use issue [Recovered/Resolved]
